APPROVED DRUG PRODUCT: LIDOCAINE HYDROCHLORIDE
Active Ingredient: LIDOCAINE HYDROCHLORIDE
Strength: 2%
Dosage Form/Route: JELLY;TOPICAL
Application: A086283 | Product #001 | TE Code: AT
Applicant: INTERNATIONAL MEDICATION SYSTEM
Approved: Approved Prior to Jan 1, 1982 | RLD: No | RS: No | Type: RX